FAERS Safety Report 8392728 (Version 4)
Quarter: 2013Q1

REPORT INFORMATION
  Report Type: Spontaneous
  Country: US (occurrence: US)
  Receive Date: 20120206
  Receipt Date: 20130205
  Transmission Date: 20140127
  Serious: Yes (Hospitalization, Other)
  Sender: FDA-Public Use
  Company Number: US-ASTRAZENECA-2012SE05195

PATIENT
  Age: 71 Year
  Sex: Male

DRUGS (3)
  1. NEXIUM [Suspect]
     Route: 048
  2. CRESTOR [Suspect]
     Route: 048
  3. STEROIDS [Concomitant]

REACTIONS (6)
  - Arterial occlusive disease [Unknown]
  - Gait disturbance [Unknown]
  - Joint swelling [Unknown]
  - Gout [Unknown]
  - Limb discomfort [Unknown]
  - Cardiac disorder [Unknown]
